FAERS Safety Report 24341421 (Version 1)
Quarter: 2024Q3

REPORT INFORMATION
  Report Type: Spontaneous
  Country: UA (occurrence: UA)
  Receive Date: 20240920
  Receipt Date: 20240920
  Transmission Date: 20241017
  Serious: Yes (Life-Threatening, Hospitalization)
  Sender: ACCORD
  Company Number: UA-MLMSERVICE-20240903-PI175638-00200-1

PATIENT
  Age: 4 Year
  Sex: Male
  Weight: 19 kg

DRUGS (1)
  1. LEVOTHYROXINE [Suspect]
     Active Substance: LEVOTHYROXINE\LEVOTHYROXINE SODIUM
     Indication: Product used for unknown indication
     Dosage: CHILD SWALLOWED A TABLET OF LEVOTHYROXINE 100 MCG
     Route: 048

REACTIONS (13)
  - Hyponatraemia [Recovering/Resolving]
  - Blood glucose increased [Unknown]
  - Loss of consciousness [Recovered/Resolved]
  - Liver function test increased [Recovering/Resolving]
  - Water intoxication [Recovering/Resolving]
  - Blood chloride decreased [Recovering/Resolving]
  - Hypervolaemia [Recovering/Resolving]
  - Conjunctival oedema [Unknown]
  - Blood creatinine decreased [Unknown]
  - Brain oedema [Recovering/Resolving]
  - Accidental poisoning [Recovering/Resolving]
  - Accidental exposure to product by child [Recovering/Resolving]
  - Eye haemorrhage [Unknown]
